FAERS Safety Report 23097086 (Version 1)
Quarter: 2023Q4

REPORT INFORMATION
  Report Type: Report from Study
  Country: US (occurrence: US)
  Receive Date: 20231023
  Receipt Date: 20231023
  Transmission Date: 20240110
  Serious: Yes (Other)
  Sender: FDA-Public Use
  Company Number: US-ABBVIE-4345176

PATIENT
  Sex: Female

DRUGS (2)
  1. RINVOQ [Suspect]
     Active Substance: UPADACITINIB
     Indication: Rheumatoid arthritis
     Dosage: FORM STRENGTH: 15 MILLIGRAM?ER
     Route: 048
     Dates: start: 20230228
  2. RINVOQ [Suspect]
     Active Substance: UPADACITINIB
     Indication: Rheumatoid arthritis
     Dosage: FORM STRENGTH: 15 MILLIGRAM?ER
     Route: 048

REACTIONS (6)
  - Sepsis [Unknown]
  - White blood cell count increased [Recovered/Resolved]
  - Swelling [Unknown]
  - Weight increased [Unknown]
  - Musculoskeletal stiffness [Not Recovered/Not Resolved]
  - General physical condition abnormal [Unknown]

NARRATIVE: CASE EVENT DATE: 20230101
